FAERS Safety Report 7215010-9 (Version None)
Quarter: 2011Q1

REPORT INFORMATION
  Report Type: 
  Country: None (occurrence: None)
  Receive Date: 20110107
  Receipt Date: 20100909
  Transmission Date: 20110831
  Serious: No
  Sender: FDA-Public Use
  Company Number: A0868963A

PATIENT
  Age: 62 Year
  Sex: Female

DRUGS (12)
  1. AMLODIPINE BESYLATE [Concomitant]
  2. VITAMIN B COMPLEX [Concomitant]
  3. VITAMIN D [Concomitant]
  4. XALATAN [Concomitant]
  5. LOVAZA [Suspect]
     Dosage: 1G TWICE PER DAY
     Route: 048
     Dates: start: 20100216, end: 20100408
  6. ACETAMINOPHEN [Concomitant]
  7. ADVAIR [Concomitant]
  8. CALCIUM [Concomitant]
  9. OMEPRAZOLE [Concomitant]
  10. ASCORBIC ACID [Concomitant]
  11. BIOTIN [Concomitant]
  12. ASPIRIN [Concomitant]

REACTIONS (2)
  - MUSCLE TIGHTNESS [None]
  - PAIN IN EXTREMITY [None]
